FAERS Safety Report 6184617-2 (Version None)
Quarter: 2009Q2

REPORT INFORMATION
  Report Type: 
  Country: None (occurrence: None)
  Receive Date: 20090508
  Receipt Date: 20090504
  Transmission Date: 20091009
  Serious: Yes (Hospitalization)
  Sender: FDA-Public Use
  Company Number: US-KINGPHARMUSA00001-K200900545

PATIENT
  Age: 87 Year
  Sex: Male

DRUGS (1)
  1. FLECTOR [Suspect]

REACTIONS (1)
  - CARDIAC DISORDER [None]
